FAERS Safety Report 17725996 (Version 2)
Quarter: 2020Q2

REPORT INFORMATION
  Report Type: Spontaneous
  Country: US (occurrence: US)
  Receive Date: 20200429
  Receipt Date: 20200508
  Transmission Date: 20200714
  Serious: Yes (Other)
  Sender: FDA-Public Use
  Company Number: US-SHIRE-US202014806

PATIENT
  Sex: Female

DRUGS (7)
  1. NATPARA (PARATHYROID HORMONE) [Suspect]
     Active Substance: PARATHYROID HORMONE
     Indication: HYPOTHYROIDISM
     Dosage: 50 MICROGRAM, 1X/DAY:QD
     Route: 065
     Dates: end: 201909
  2. NATPARA (PARATHYROID HORMONE) [Suspect]
     Active Substance: PARATHYROID HORMONE
     Indication: POST PROCEDURAL HYPOPARATHYROIDISM
     Dosage: 25 MICROGRAM, 1X/DAY:QD
     Route: 065
     Dates: start: 201901
  3. LEVOTHYROXINE. [Concomitant]
     Active Substance: LEVOTHYROXINE
     Indication: HYPOTHYROIDISM
  4. CALCITRIOL. [Suspect]
     Active Substance: CALCITRIOL
     Indication: PRODUCT USED FOR UNKNOWN INDICATION
     Route: 065
  5. FORTEO [Suspect]
     Active Substance: TERIPARATIDE
     Indication: POST PROCEDURAL HYPOPARATHYROIDISM
     Dosage: 10 MICROGRAM, 4X/DAY:QID
     Route: 050
  6. NATPARA (PARATHYROID HORMONE) [Suspect]
     Active Substance: PARATHYROID HORMONE
     Dosage: 75 MICROGRAM, 1X/DAY:QD
     Route: 065
     Dates: end: 201909
  7. CALCIUM [Suspect]
     Active Substance: CALCIUM
     Indication: PRODUCT USED FOR UNKNOWN INDICATION
     Route: 065

REACTIONS (17)
  - Vomiting [Unknown]
  - Insurance issue [Unknown]
  - Depression [Unknown]
  - Tinnitus [Unknown]
  - Lethargy [Unknown]
  - Insomnia [Unknown]
  - Recalled product [Unknown]
  - Bone pain [Unknown]
  - Weight increased [Unknown]
  - Fracture [Unknown]
  - Temperature intolerance [Unknown]
  - Seasonal allergy [Unknown]
  - Nausea [Unknown]
  - Pain in jaw [Unknown]
  - Dental caries [Unknown]
  - Hypocalcaemia [Unknown]
  - Ear pain [Unknown]
